FAERS Safety Report 24743027 (Version 1)
Quarter: 2024Q4

REPORT INFORMATION
  Report Type: Report from Study
  Country: US (occurrence: US)
  Receive Date: 20241217
  Receipt Date: 20241217
  Transmission Date: 20250115
  Serious: Yes (Hospitalization)
  Sender: ABBVIE
  Company Number: US-ABBVIE-6046893

PATIENT
  Age: 50 Year
  Sex: Male

DRUGS (1)
  1. CREON [Suspect]
     Active Substance: PANCRELIPASE AMYLASE\PANCRELIPASE LIPASE\PANCRELIPASE PROTEASE
     Indication: Product used for unknown indication
     Route: 048
     Dates: start: 20170101

REACTIONS (10)
  - Blood folate decreased [Not Recovered/Not Resolved]
  - Vitamin B12 decreased [Not Recovered/Not Resolved]
  - Diarrhoea [Not Recovered/Not Resolved]
  - Cognitive disorder [Unknown]
  - Balance disorder [Unknown]
  - Neuralgia [Unknown]
  - Coeliac disease [Unknown]
  - Steatorrhoea [Recovered/Resolved]
  - Abdominal pain [Unknown]
  - Weight gain poor [Unknown]

NARRATIVE: CASE EVENT DATE: 20230101
